APPROVED DRUG PRODUCT: BENZTROPINE MESYLATE
Active Ingredient: BENZTROPINE MESYLATE
Strength: 1MG
Dosage Form/Route: TABLET;ORAL
Application: A088510 | Product #001
Applicant: QUANTUM PHARMICS LTD
Approved: Jan 31, 1984 | RLD: No | RS: No | Type: DISCN